FAERS Safety Report 9919305 (Version 3)
Quarter: 2014Q1

REPORT INFORMATION
  Report Type: Spontaneous
  Country: TH (occurrence: TH)
  Receive Date: 20140224
  Receipt Date: 20140321
  Transmission Date: 20141002
  Serious: Yes (Hospitalization, Other)
  Sender: FDA-Public Use
  Company Number: TH-009507513-1402THA007978

PATIENT
  Age: 63 Year
  Sex: Male

DRUGS (1)
  1. BOCEPREVIR [Suspect]
     Dosage: UNK
     Route: 048
     Dates: end: 20140216

REACTIONS (3)
  - Pneumonia [Recovered/Resolved]
  - Convulsion [Recovered/Resolved]
  - Hyponatraemia [Recovered/Resolved]
